FAERS Safety Report 21801026 (Version 1)
Quarter: 2022Q4

REPORT INFORMATION
  Report Type: Spontaneous
  Country: US (occurrence: US)
  Receive Date: 20221230
  Receipt Date: 20221230
  Transmission Date: 20230112
  Serious: Yes (Other)
  Sender: FDA-Public Use
  Company Number: US-BRISTOL-MYERS SQUIBB COMPANY-2022-160362

PATIENT
  Age: 58 Year
  Sex: Female
  Weight: 97 kg

DRUGS (1)
  1. REVLIMID [Suspect]
     Active Substance: LENALIDOMIDE
     Indication: Plasma cell myeloma
     Dosage: FREQUENCY- DAILY 1-21, THEN 7 DAYS OFF.
     Route: 048
     Dates: start: 20220331

REACTIONS (4)
  - Ear infection [Recovering/Resolving]
  - Parotitis [Recovering/Resolving]
  - Neutropenia [Not Recovered/Not Resolved]
  - Influenza [Recovering/Resolving]
